FAERS Safety Report 9826040 (Version 2)
Quarter: 2014Q3

REPORT INFORMATION
  Report Type: Spontaneous
  Country: US (occurrence: None)
  Receive Date: 20131104
  Receipt Date: 20140912
  Transmission Date: 20150326
  Serious: Yes (Other)
  Sender: FDA-Public Use
  Company Number: 1000048063

PATIENT
  Age: 75 Year
  Sex: Male
  Weight: 114.3 kg

DRUGS (19)
  1. ZETIA [Concomitant]
     Active Substance: EZETIMIBE
  2. LEVOTHYROXINE (LEVOTHYROXINE SODIUM) [Concomitant]
  3. BABY ASPIRIN (ACETYLSALICYLIC ACID) [Concomitant]
     Active Substance: ASPIRIN
  4. SIMVASTATIN (SIMVASTATIN) [Concomitant]
     Active Substance: SIMVASTATIN
  5. OMEPRAZOLE (OMEPRAZOLE) [Concomitant]
     Active Substance: OMEPRAZOLE
  6. ALLEGRA [Concomitant]
     Active Substance: FEXOFENADINE HYDROCHLORIDE
  7. GLUCOSAMINE (GLUCOSAMINE) [Concomitant]
     Active Substance: GLUCOSAMINE
  8. DALIRESP [Suspect]
     Active Substance: ROFLUMILAST
     Indication: CHRONIC OBSTRUCTIVE PULMONARY DISEASE
     Route: 048
     Dates: start: 201307, end: 20130818
  9. CILOSTAZOL (CILOSTAZOL) [Concomitant]
  10. FLONASE [Concomitant]
     Active Substance: FLUTICASONE PROPIONATE
  11. CANDESARTAN (CANDESARTAN) [Concomitant]
     Active Substance: CANDESARTAN
  12. CALCIUM (CALCIUM) [Concomitant]
     Active Substance: CALCIUM
  13. LANTUS [Concomitant]
     Active Substance: INSULIN GLARGINE
  14. TRAMADOL (TRAMADOL) [Concomitant]
     Active Substance: TRAMADOL
  15. VIT D (ERGOCALCIFEROL) [Concomitant]
     Active Substance: ERGOCALCIFEROL
  16. INSULIN (INSULIN) [Concomitant]
     Active Substance: INSULIN NOS
  17. SINGULAIR (MONTELUKAST SODIUIM) [Concomitant]
  18. COMBIVENT (IPRATROPIUM, ALBUTEROL) [Concomitant]
  19. DULERA (MOMETASONE, FORMOTEROL) [Concomitant]

REACTIONS (6)
  - Weight decreased [None]
  - Decreased appetite [None]
  - Chills [None]
  - Nausea [None]
  - Hyperhidrosis [None]
  - Pyrexia [None]

NARRATIVE: CASE EVENT DATE: 201307
